FAERS Safety Report 8071074-4 (Version None)
Quarter: 2012Q1

REPORT INFORMATION
  Report Type: 
  Country: None (occurrence: None)
  Receive Date: 20120125
  Receipt Date: 20120117
  Transmission Date: 20120608
  Serious: Yes (Life-Threatening, Hospitalization, Other)
  Sender: FDA-Public Use
  Company Number: US-PFIZER INC-2011267513

PATIENT
  Sex: Female

DRUGS (11)
  1. FAMOTIDINE [Concomitant]
     Dosage: 20 MG, UNK
  2. RISPERIDONE [Concomitant]
     Dosage: 0.5 MG, UNK
  3. BYSTOLIC [Concomitant]
     Dosage: 10 MG, UNK
  4. SULAR [Suspect]
  5. ENALAPRIL MALEATE [Concomitant]
     Dosage: 10 MG, UNK
  6. CADUET [Suspect]
     Indication: BLOOD PRESSURE ABNORMAL
     Dosage: 10 MG/20 MG], DAILY
     Dates: start: 20110730, end: 20111001
  7. PREDNISONE [Concomitant]
     Dosage: 20 MG, UNK
  8. ZYPREXA [Suspect]
  9. CADUET [Suspect]
     Indication: BLOOD CHOLESTEROL INCREASED
     Dosage: 10 MG, DAILY
     Route: 048
     Dates: start: 20110730
  10. ATENOLOL [Concomitant]
     Dosage: 25 MG, UNK
  11. HYDROCHLOROTHIAZIDE [Concomitant]
     Dosage: UNK

REACTIONS (8)
  - BLOOD PRESSURE ABNORMAL [None]
  - DRUG INEFFECTIVE [None]
  - INJURY [None]
  - BRAIN INJURY [None]
  - HEADACHE [None]
  - CHEST PAIN [None]
  - PAIN [None]
  - FEELING ABNORMAL [None]
